FAERS Safety Report 7682860-4 (Version None)
Quarter: 2011Q3

REPORT INFORMATION
  Report Type: 
  Country: None (occurrence: None)
  Receive Date: 20110815
  Receipt Date: 20110803
  Transmission Date: 20111222
  Serious: Yes (Other)
  Sender: FDA-Public Use
  Company Number: US-ROCHE-791177

PATIENT
  Sex: Male

DRUGS (4)
  1. CLARAVIS [Suspect]
     Indication: ACNE
     Route: 065
  2. AMNESTEEM [Suspect]
     Indication: ACNE
     Route: 065
  3. ACCUTANE [Suspect]
     Indication: ACNE
     Route: 065
     Dates: start: 19970101, end: 19980101
  4. SOTRET [Suspect]
     Indication: ACNE
     Route: 065

REACTIONS (3)
  - CROHN'S DISEASE [None]
  - ANXIETY [None]
  - INFLAMMATORY BOWEL DISEASE [None]
